FAERS Safety Report 6856366-6 (Version None)
Quarter: 2010Q3

REPORT INFORMATION
  Report Type: 
  Country: None (occurrence: None)
  Receive Date: 20100715
  Receipt Date: 20100715
  Transmission Date: 20110219
  Serious: Yes (Other)
  Sender: FDA-Public Use
  Company Number: None

PATIENT
  Age: 18 Year
  Sex: Female
  Weight: 53 kg

DRUGS (2)
  1. SUBOXONE [Suspect]
     Indication: DRUG DEPENDENCE
     Dosage: 1 PILL DAILY SUBLINGUAL
     Route: 060
     Dates: start: 20100511, end: 20100525
  2. SUBOXONE [Suspect]
     Indication: DRUG DEPENDENCE
     Dosage: 1 PILL DAILY SUBLINGUAL
     Route: 060
     Dates: start: 20100712

REACTIONS (2)
  - BACK DISORDER [None]
  - JOINT SWELLING [None]
